FAERS Safety Report 16822500 (Version 1)
Quarter: 2019Q3

REPORT INFORMATION
  Report Type: Spontaneous
  Country: US (occurrence: US)
  Receive Date: 20190918
  Receipt Date: 20190918
  Transmission Date: 20191005
  Serious: No
  Sender: FDA-Public Use
  Company Number: US-BAYER-2019-170475

PATIENT
  Sex: Female

DRUGS (3)
  1. CLARITIN [Suspect]
     Active Substance: LORATADINE
     Indication: PRURITUS
     Dosage: UNK
  2. CLARITIN [Suspect]
     Active Substance: LORATADINE
     Indication: PRURITUS
  3. CLARITIN [Suspect]
     Active Substance: LORATADINE
     Indication: FACIAL PAIN

REACTIONS (2)
  - Drug ineffective for unapproved indication [Unknown]
  - Pruritus [Unknown]
